FAERS Safety Report 8462923-6 (Version None)
Quarter: 2012Q2

REPORT INFORMATION
  Report Type: 
  Country: None (occurrence: None)
  Receive Date: 20120625
  Receipt Date: 20120622
  Transmission Date: 20120825
  Serious: Yes (Hospitalization)
  Sender: FDA-Public Use
  Company Number: US-GILEAD-2012-0055932

PATIENT
  Sex: Female

DRUGS (2)
  1. LETAIRIS [Suspect]
     Indication: CONGENITAL PULMONARY HYPERTENSION
     Dosage: 10 MG, UNK
     Route: 048
     Dates: start: 20080215
  2. LETAIRIS [Suspect]
     Indication: VENTRICULAR SEPTAL DEFECT

REACTIONS (5)
  - RENAL FAILURE ACUTE [None]
  - DIARRHOEA [None]
  - DEHYDRATION [None]
  - HYPOKALAEMIA [None]
  - VOMITING [None]
